FAERS Safety Report 7367378-0 (Version None)
Quarter: 2011Q1

REPORT INFORMATION
  Report Type: 
  Country: None (occurrence: None)
  Receive Date: 20110322
  Receipt Date: 20110321
  Transmission Date: 20110831
  Serious: Yes (Other)
  Sender: FDA-Public Use
  Company Number: US-BRISTOL-MYERS SQUIBB COMPANY-15620693

PATIENT
  Age: 81 Year
  Sex: Male

DRUGS (2)
  1. ABILIFY [Suspect]
     Indication: HALLUCINATION
     Dosage: INITIALLY 5MG FEB2011-HALF OF A 5MG:2WEEKS AND AGAIN 5MG 12MAR2011 BACK TO HALF OF A 5MG.
     Dates: start: 20110125
  2. ABILIFY [Suspect]
     Indication: DEMENTIA
     Dosage: INITIALLY 5MG FEB2011-HALF OF A 5MG:2WEEKS AND AGAIN 5MG 12MAR2011 BACK TO HALF OF A 5MG.
     Dates: start: 20110125

REACTIONS (4)
  - FATIGUE [None]
  - HALLUCINATION, AUDITORY [None]
  - WRONG TECHNIQUE IN DRUG USAGE PROCESS [None]
  - TREMOR [None]
